FAERS Safety Report 24065406 (Version 1)
Quarter: 2024Q3

REPORT INFORMATION
  Report Type: Spontaneous
  Country: US (occurrence: None)
  Receive Date: 20240708
  Receipt Date: 20240708
  Transmission Date: 20241016
  Serious: Yes (unspecified)
  Sender: Public
  Company Number: None

PATIENT
  Age: 61 Year
  Sex: Female

DRUGS (1)
  1. LENALIDOMIDE [Suspect]
     Active Substance: LENALIDOMIDE
     Indication: Follicular lymphoma stage III
     Dosage: OTHER FREQUENCY : QDFOR21DAYSTHEN7DAYS OFF ;?

REACTIONS (3)
  - Platelet count abnormal [None]
  - Neutrophil count abnormal [None]
  - Therapy interrupted [None]
